FAERS Safety Report 8922371 (Version 2)
Quarter: 2013Q1

REPORT INFORMATION
  Report Type: Report from Study
  Country: US (occurrence: US)
  Receive Date: 20121123
  Receipt Date: 20130128
  Transmission Date: 20140127
  Serious: Yes (Hospitalization, Other)
  Sender: FDA-Public Use
  Company Number: US-JNJFOC-20121109443

PATIENT
  Sex: Male
  Weight: 79.38 kg

DRUGS (7)
  1. REMICADE [Suspect]
     Indication: CROHN^S DISEASE
     Dosage: STARTED ABOUT 2 AND HALF YEARS AGO
     Route: 042
     Dates: start: 2010
  2. LEVOXYL [Concomitant]
     Indication: HYPOTHYROIDISM
     Route: 065
  3. PRIMIDONE [Concomitant]
     Indication: TREMOR
     Route: 065
  4. FINASTERIDE [Concomitant]
     Indication: BENIGN PROSTATIC HYPERPLASIA
     Route: 065
  5. CHOLESTYRAMINE [Concomitant]
     Indication: DIARRHOEA
     Route: 065
  6. CENTRUM SILVER [Concomitant]
     Route: 065
  7. IBUPROFEN [Concomitant]
     Dosage: PRN
     Route: 065

REACTIONS (3)
  - Pulmonary embolism [Unknown]
  - Pneumonia [Unknown]
  - Lupus-like syndrome [Not Recovered/Not Resolved]
